FAERS Safety Report 5416020-4 (Version None)
Quarter: 2007Q3

REPORT INFORMATION
  Report Type: 
  Country: None (occurrence: None)
  Receive Date: 20070815
  Receipt Date: 20070806
  Transmission Date: 20080115
  Serious: Yes (Other)
  Sender: FDA-Public Use
  Company Number: US-ABBOTT-07P-163-0368280-00

PATIENT
  Sex: Female

DRUGS (19)
  1. HUMIRA [Suspect]
     Indication: CROHN'S DISEASE
     Dates: start: 20070515, end: 20070515
  2. VICODIN [Concomitant]
     Indication: PAIN
  3. MIRTAZAPINE [Concomitant]
     Indication: DRUG USE FOR UNKNOWN INDICATION
     Route: 048
  4. LEVETIRACETAM [Concomitant]
     Indication: DRUG USE FOR UNKNOWN INDICATION
     Route: 048
  5. HYOSCYAMINE SULFATE [Concomitant]
     Indication: DRUG USE FOR UNKNOWN INDICATION
     Route: 060
  6. MESALAZINE [Concomitant]
     Indication: DRUG USE FOR UNKNOWN INDICATION
     Route: 048
  7. NEUTRA-PHOS [Concomitant]
     Indication: DRUG USE FOR UNKNOWN INDICATION
  8. ESOMEPRAZOLE MAGNESIUM [Concomitant]
     Indication: DRUG USE FOR UNKNOWN INDICATION
     Route: 048
  9. CALCITONIN-SALMON [Concomitant]
     Indication: DRUG USE FOR UNKNOWN INDICATION
     Route: 045
  10. CALCIUM WITH VITAMIN D [Concomitant]
     Indication: DRUG USE FOR UNKNOWN INDICATION
  11. ERGOCALCIFEROL [Concomitant]
     Indication: DRUG USE FOR UNKNOWN INDICATION
     Route: 048
  12. DRONABINOL [Concomitant]
     Indication: DRUG USE FOR UNKNOWN INDICATION
     Route: 048
  13. EPOGEN [Concomitant]
     Indication: DRUG USE FOR UNKNOWN INDICATION
     Dosage: 20,000 UNIT/ML, INJECTION
  14. SERTRALINE [Concomitant]
     Indication: DRUG USE FOR UNKNOWN INDICATION
     Route: 048
  15. CYANOCOBALAMIN [Concomitant]
     Indication: DRUG USE FOR UNKNOWN INDICATION
     Route: 030
  16. PHENERGAN HCL [Concomitant]
     Indication: NAUSEA
     Route: 048
  17. LOMOTIL [Concomitant]
     Indication: DIARRHOEA
     Dosage: 2.5/0.025 MG, ORAL, TABLETS
  18. POTASSIUM CHLORIDE [Concomitant]
     Indication: DRUG USE FOR UNKNOWN INDICATION
     Route: 048
  19. DIPHENHYDRAMINE HYDROCHLORIDE [Concomitant]
     Indication: DRUG USE FOR UNKNOWN INDICATION
     Route: 048

REACTIONS (16)
  - ACCIDENTAL EXPOSURE [None]
  - ANAPHYLACTIC REACTION [None]
  - ASTHENIA [None]
  - BLOOD GLUCOSE INCREASED [None]
  - CONVULSION [None]
  - DYSPNOEA [None]
  - HYPOKALAEMIA [None]
  - MALAISE [None]
  - NAUSEA [None]
  - PHARYNGEAL OEDEMA [None]
  - POSTICTAL STATE [None]
  - SWOLLEN TONGUE [None]
  - TACHYCARDIA [None]
  - THROAT TIGHTNESS [None]
  - TREMOR [None]
  - VOMITING [None]
